FAERS Safety Report 10280421 (Version 1)
Quarter: 2014Q3

REPORT INFORMATION
  Report Type: Spontaneous
  Country: US (occurrence: None)
  Receive Date: 20140701
  Receipt Date: 20140701
  Transmission Date: 20150326
  Serious: Yes (Other)
  Sender: FDA-Public Use
  Company Number: None

PATIENT
  Age: 38 Year
  Sex: Male
  Weight: 68.04 kg

DRUGS (1)
  1. BUPROPION 300MG ACTAVIS [Suspect]
     Active Substance: BUPROPION
     Indication: DEPRESSION
     Dosage: 1 PILL EACH MORNING ONCE DAILY TAKEN BY MOUTH
     Route: 048

REACTIONS (5)
  - Fall [None]
  - Product formulation issue [None]
  - Hypersomnia [None]
  - Loss of consciousness [None]
  - Thermal burn [None]

NARRATIVE: CASE EVENT DATE: 20140529
